FAERS Safety Report 12493160 (Version 2)
Quarter: 2016Q2

REPORT INFORMATION
  Report Type: Spontaneous
  Country: US (occurrence: US)
  Receive Date: 20160623
  Receipt Date: 20160629
  Transmission Date: 20160815
  Serious: No
  Sender: FDA-Public Use
  Company Number: US-TEVA-669035USA

PATIENT
  Sex: Female
  Weight: 79.45 kg

DRUGS (1)
  1. NUVIGIL [Suspect]
     Active Substance: ARMODAFINIL
     Indication: NARCOLEPSY

REACTIONS (4)
  - Weight loss poor [Not Recovered/Not Resolved]
  - Drug effect incomplete [Unknown]
  - Wrong technique in product usage process [Unknown]
  - Drug prescribing error [Unknown]
